FAERS Safety Report 18250353 (Version 1)
Quarter: 2020Q3

REPORT INFORMATION
  Report Type: Report from Study
  Country: DE (occurrence: BR)
  Receive Date: 20200909
  Receipt Date: 20200909
  Transmission Date: 20201103
  Serious: Yes (Other)
  Sender: FDA-Public Use
  Company Number: BR-ENDO PHARMACEUTICALS INC-2020-004097

PATIENT
  Age: 66 Year
  Sex: Male

DRUGS (4)
  1. AVEED [Suspect]
     Active Substance: TESTOSTERONE UNDECANOATE
     Dosage: 1 DF, EVERY 3 MONTHS
     Route: 065
     Dates: start: 2009, end: 201912
  2. SYNTHROID [Concomitant]
     Active Substance: LEVOTHYROXINE SODIUM
     Indication: THYROIDECTOMY
     Dosage: 137 MG, DAILY
     Route: 065
  3. AVEED [Suspect]
     Active Substance: TESTOSTERONE UNDECANOATE
     Indication: ANDROGEN REPLACEMENT THERAPY
     Dosage: UNK UNKNOWN, UNKNOWN
     Route: 065
     Dates: start: 20200827
  4. LOSARTAN. [Concomitant]
     Active Substance: LOSARTAN
     Indication: HYPERTENSION
     Dosage: 50 MG, BID
     Route: 065
     Dates: start: 2009

REACTIONS (6)
  - Pain [Unknown]
  - Inflammation [Unknown]
  - Fall [Unknown]
  - Rib fracture [Unknown]
  - Benign prostatic hyperplasia [Recovered/Resolved]
  - Lung perforation [Unknown]

NARRATIVE: CASE EVENT DATE: 2020
